FAERS Safety Report 15150121 (Version 1)
Quarter: 2018Q3

REPORT INFORMATION
  Report Type: Spontaneous
  Country: US (occurrence: US)
  Receive Date: 20180619
  Receipt Date: 20180619
  Transmission Date: 20181010
  Serious: No
  Sender: FDA-Public Use
  Company Number: None

PATIENT
  Age: 62 Year
  Sex: Female
  Weight: 45.36 kg

DRUGS (3)
  1. MIRALAX [Suspect]
     Active Substance: POLYETHYLENE GLYCOL 3350
     Indication: CONSTIPATION
     Route: 048
     Dates: start: 20180507, end: 20180528
  2. CALCIUM [Concomitant]
     Active Substance: CALCIUM
  3. MULTIVITAMINS [Concomitant]
     Active Substance: VITAMINS

REACTIONS (11)
  - Abdominal pain upper [None]
  - Nausea [None]
  - Fatigue [None]
  - Gait disturbance [None]
  - Toxicity to various agents [None]
  - Feeling abnormal [None]
  - Weight decreased [None]
  - Pallor [None]
  - Asthenia [None]
  - Loss of personal independence in daily activities [None]
  - Confusional state [None]

NARRATIVE: CASE EVENT DATE: 20180507
